FAERS Safety Report 6657948-7 (Version None)
Quarter: 2010Q1

REPORT INFORMATION
  Report Type: 
  Country: None (occurrence: None)
  Receive Date: 20100326
  Receipt Date: 20100322
  Transmission Date: 20100710
  Serious: Yes (Other)
  Sender: FDA-Public Use
  Company Number: 1000009316

PATIENT
  Age: 37 Year
  Sex: Male

DRUGS (1)
  1. LEXAPRO [Suspect]
     Indication: AGGRESSION
     Dosage: 30 MG (30 MG, 1 IN 1 D), ORAL
     Route: 048
     Dates: start: 20070701, end: 20090601

REACTIONS (10)
  - AFFECTIVE DISORDER [None]
  - AMNESIA [None]
  - EMOTIONAL DISORDER [None]
  - FEAR [None]
  - HEAD INJURY [None]
  - HIGH RISK SEXUAL BEHAVIOUR [None]
  - JUDGEMENT IMPAIRED [None]
  - OVERDOSE [None]
  - PERSONALITY CHANGE [None]
  - ROAD TRAFFIC ACCIDENT [None]
